FAERS Safety Report 8894829 (Version 1)
Quarter: 2012Q4

REPORT INFORMATION
  Report Type: 
  Country: US (occurrence: US)
  Receive Date: 20121108
  Receipt Date: 20121108
  Transmission Date: 20130627
  Serious: Yes (Other)
  Sender: FDA-Public Use
  Company Number: US-SANOFI-AVENTIS-2012SA080720

PATIENT
  Age: 8 Year

DRUGS (1)
  1. CLOMID [Suspect]
     Indication: INFERTILITY
     Route: 065

REACTIONS (1)
  - Cytogenetic abnormality [Not Recovered/Not Resolved]
